FAERS Safety Report 19834635 (Version 1)
Quarter: 2021Q3

REPORT INFORMATION
  Report Type: Spontaneous
  Country: US (occurrence: US)
  Receive Date: 20210914
  Receipt Date: 20210914
  Transmission Date: 20211014
  Serious: No
  Sender: FDA-Public Use
  Company Number: US-JACOBUS PHARMACEUTICAL COMPANY, INC.-2118355

PATIENT
  Age: 75 Year
  Sex: Male

DRUGS (9)
  1. RUZURGI [Suspect]
     Active Substance: AMIFAMPRIDINE
     Indication: MYASTHENIC SYNDROME
     Route: 048
     Dates: start: 20210408
  2. ZINC. [Concomitant]
     Active Substance: ZINC
  3. CYANOCOBALAMIN. [Concomitant]
     Active Substance: CYANOCOBALAMIN
  4. VITAMIN D [Concomitant]
     Active Substance: VITAMIN D NOS
  5. FUROSEMIDE. [Concomitant]
     Active Substance: FUROSEMIDE
  6. TYLENOL [Concomitant]
     Active Substance: ACETAMINOPHEN
  7. MIDODRINE HYDROCHLORIDE. [Concomitant]
     Active Substance: MIDODRINE HYDROCHLORIDE
  8. ASPIRIN. [Concomitant]
     Active Substance: ASPIRIN
  9. ASPERCREME HEAT [Concomitant]
     Active Substance: MENTHOL

REACTIONS (2)
  - Balance disorder [Unknown]
  - Muscle twitching [Unknown]
